FAERS Safety Report 5402658-7 (Version None)
Quarter: 2007Q3

REPORT INFORMATION
  Report Type: 
  Country: None (occurrence: None)
  Receive Date: 20070730
  Receipt Date: 20070730
  Transmission Date: 20080115
  Serious: Yes (Life-Threatening, Hospitalization, Other)
  Sender: FDA-Public Use
  Company Number: None

PATIENT
  Sex: Male
  Weight: 29.0302 kg

DRUGS (2)
  1. SINGULAIR [Suspect]
     Indication: ASTHMA
     Dosage: 5 MG ONCE PER DAY PO
     Route: 048
     Dates: start: 20051205, end: 20070402
  2. SINGULAIR [Suspect]
     Indication: HYPERSENSITIVITY
     Dosage: 5 MG ONCE PER DAY PO
     Route: 048
     Dates: start: 20051205, end: 20070402

REACTIONS (20)
  - ALLERGY TO CHEMICALS [None]
  - BLOOD IMMUNOGLOBULIN E INCREASED [None]
  - BODY TEMPERATURE INCREASED [None]
  - EOSINOPHIL COUNT INCREASED [None]
  - ERYTHEMA [None]
  - EXPOSURE TO TOXIC AGENT [None]
  - GENERAL PHYSICAL HEALTH DETERIORATION [None]
  - LYMPHADENOPATHY [None]
  - NAIL DISCOLOURATION [None]
  - OEDEMA PERIPHERAL [None]
  - PRURITUS [None]
  - RASH [None]
  - SECRETION DISCHARGE [None]
  - SKIN DISCOLOURATION [None]
  - SKIN EXFOLIATION [None]
  - SKIN FISSURES [None]
  - SKIN HAEMORRHAGE [None]
  - SKIN ODOUR ABNORMAL [None]
  - VASOCONSTRICTION [None]
  - VASODILATION PROCEDURE [None]
